FAERS Safety Report 21781410 (Version 1)
Quarter: 2022Q4

REPORT INFORMATION
  Report Type: Report from Study
  Country: BR (occurrence: BR)
  Receive Date: 20221227
  Receipt Date: 20221227
  Transmission Date: 20230112
  Serious: Yes (Other)
  Sender: FDA-Public Use
  Company Number: BR-002147023-NVSC2022BR296968

PATIENT
  Sex: Female

DRUGS (1)
  1. AMLODIPINE\VALSARTAN [Suspect]
     Active Substance: AMLODIPINE\VALSARTAN
     Indication: Blood pressure measurement
     Dosage: UNK, (14 YEARS  AGO)
     Route: 065

REACTIONS (1)
  - Myocardial infarction [Recovered/Resolved]
